FAERS Safety Report 17141003 (Version 4)
Quarter: 2020Q1

REPORT INFORMATION
  Report Type: Spontaneous
  Country: US (occurrence: US)
  Receive Date: 20191211
  Receipt Date: 20200123
  Transmission Date: 20200409
  Serious: No
  Sender: FDA-Public Use
  Company Number: US-PFIZER INC-2019532781

PATIENT
  Age: 63 Year
  Sex: Female

DRUGS (7)
  1. METRONIDAZOLE. [Suspect]
     Active Substance: METRONIDAZOLE
     Dosage: UNK
  2. IMIPRAMINE [Suspect]
     Active Substance: IMIPRAMINE
     Dosage: UNK
  3. CODEINE [Suspect]
     Active Substance: CODEINE
     Dosage: UNK
  4. ADENOSINE PHOSPHATE [Suspect]
     Active Substance: ADENOSINE PHOSPHATE
     Dosage: UNK
  5. GENTAMICIN SULFATE. [Suspect]
     Active Substance: GENTAMICIN SULFATE
     Dosage: UNK
  6. IODINE. [Suspect]
     Active Substance: IODINE
     Dosage: UNK
  7. MEPERIDINE HCL [Suspect]
     Active Substance: MEPERIDINE HYDROCHLORIDE
     Dosage: UNK

REACTIONS (1)
  - Drug hypersensitivity [Unknown]
